FAERS Safety Report 5012089-X (Version None)
Quarter: 2006Q2

REPORT INFORMATION
  Report Type: 
  Country: None (occurrence: None)
  Receive Date: 20060524
  Receipt Date: 20060515
  Transmission Date: 20061013
  Serious: Yes (Death)
  Sender: FDA-Public Use
  Company Number: GXKR2006GB02793

PATIENT
  Age: 53 Year
  Sex: Male

DRUGS (5)
  1. CITALOPRAM HYDROBROMIDE [Suspect]
     Indication: DEPRESSION
     Dosage: 20 MG, ORAL
     Route: 048
     Dates: start: 20051031
  2. HYPROMELLOSE (HYPROMELLOSE) [Concomitant]
  3. ACETYCYSTEINE (ACETYLCYSTEINE) [Concomitant]
  4. AMITRIPTYLINE HCL [Concomitant]
  5. TEMAZEPAM [Concomitant]

REACTIONS (1)
  - COMPLETED SUICIDE [None]
